FAERS Safety Report 5613165-0 (Version None)
Quarter: 2008Q1

REPORT INFORMATION
  Report Type: 
  Country: None (occurrence: None)
  Receive Date: 20080129
  Receipt Date: 20080114
  Transmission Date: 20080703
  Serious: Yes (Hospitalization)
  Sender: FDA-Public Use
  Company Number: 230389M07USA

PATIENT
  Age: 29 Year
  Sex: Female
  Weight: 63.5036 kg

DRUGS (2)
  1. REBIF [Suspect]
     Indication: MULTIPLE SCLEROSIS
     Dosage: 44 MCG, 3 IN 1 WEEKS, SUBCUTANEOUS
     Route: 058
     Dates: start: 20051101
  2. IBUPROFEN [Suspect]

REACTIONS (5)
  - GASTRITIS [None]
  - HEADACHE [None]
  - NECK PAIN [None]
  - NERVE INJURY [None]
  - POST PROCEDURAL COMPLICATION [None]
